FAERS Safety Report 25806773 (Version 1)
Quarter: 2025Q3

REPORT INFORMATION
  Report Type: Spontaneous
  Country: CN (occurrence: CN)
  Receive Date: 20250916
  Receipt Date: 20250916
  Transmission Date: 20251021
  Serious: Yes (Hospitalization, Other)
  Sender: BAXTER
  Company Number: None

PATIENT
  Age: 45 Year
  Sex: Female
  Weight: 44 kg

DRUGS (6)
  1. CYCLOPHOSPHAMIDE [Suspect]
     Active Substance: CYCLOPHOSPHAMIDE
     Indication: Breast cancer female
     Dosage: 0.3 G, QD WITH NS 500ML
     Route: 042
     Dates: start: 20250826, end: 20250826
  2. SODIUM CHLORIDE [Suspect]
     Active Substance: SODIUM CHLORIDE
     Dosage: 500 ML WITH CYCLOPHOSPHAMIDE FOR INJECTION 0.3G
     Route: 042
     Dates: start: 20250826, end: 20250826
  3. SODIUM CHLORIDE [Suspect]
     Active Substance: SODIUM CHLORIDE
     Dosage: 250 ML, QD WITH PIRARUBICIN HYDROCHLORIDE FOR INJECTION 60MG
     Route: 042
     Dates: start: 20250826, end: 20250826
  4. SODIUM CHLORIDE [Suspect]
     Active Substance: SODIUM CHLORIDE
     Dosage: 250 ML, QD WITH PACLITAXEL FOR INJECTION 300MG
     Route: 042
     Dates: start: 20250826, end: 20250826
  5. PIRARUBICIN HYDROCHLORIDE [Suspect]
     Active Substance: PIRARUBICIN HYDROCHLORIDE
     Indication: Breast cancer female
     Dosage: 60 MG, QD WITH NS 250ML IVGTT
     Route: 042
     Dates: start: 20250826, end: 20250826
  6. PACLITAXEL [Suspect]
     Active Substance: PACLITAXEL
     Indication: Breast cancer female
     Dosage: 300 MG, QD WITH NS 250ML
     Route: 042
     Dates: start: 20250826, end: 20250826

REACTIONS (3)
  - Myelosuppression [Unknown]
  - White blood cell count decreased [Recovered/Resolved]
  - Granulocyte count decreased [Recovered/Resolved]

NARRATIVE: CASE EVENT DATE: 20250903
